FAERS Safety Report 4334784-8 (Version None)
Quarter: 2004Q2

REPORT INFORMATION
  Report Type: 
  Country: None (occurrence: None)
  Receive Date: 20040405
  Receipt Date: 20040329
  Transmission Date: 20050107
  Serious: Yes (Life-Threatening)
  Sender: FDA-Public Use
  Company Number: 2004CG00618

PATIENT
  Age: 69 Year
  Sex: Female

DRUGS (5)
  1. TENORMIN [Suspect]
     Dates: start: 19970101
  2. CYCLOPHOSPHAMIDE [Suspect]
     Indication: THROMBOCYTOPENIA
     Dates: start: 20030305, end: 20030429
  3. RITUXIMAB [Suspect]
     Indication: THROMBOCYTOPENIA
     Dates: start: 20030506, end: 20030528
  4. ELISOR [Suspect]
     Dates: start: 19990101
  5. ODRIK [Suspect]
     Dates: start: 19990101

REACTIONS (3)
  - CONDITION AGGRAVATED [None]
  - DRUG RESISTANCE [None]
  - IDIOPATHIC THROMBOCYTOPENIC PURPURA [None]
